FAERS Safety Report 6992569-8 (Version None)
Quarter: 2010Q3

REPORT INFORMATION
  Report Type: 
  Country: None (occurrence: None)
  Receive Date: 20100917
  Receipt Date: 20100908
  Transmission Date: 20110219
  Serious: Yes (Other)
  Sender: FDA-Public Use
  Company Number: US-SANOFI-AVENTIS-2010SA054834

PATIENT
  Age: 56 Year
  Sex: Male

DRUGS (4)
  1. LANTUS [Suspect]
     Dosage: DOSE:20 UNIT(S)
     Route: 058
  2. OPTICLICK [Suspect]
     Dates: end: 20100101
  3. ALCOHOL [Suspect]
  4. ANALGESICS [Concomitant]

REACTIONS (1)
  - MYOCARDIAL INFARCTION [None]
